FAERS Safety Report 8850680 (Version 2)
Quarter: 2012Q4

REPORT INFORMATION
  Report Type: 
  Country: FR (occurrence: FR)
  Receive Date: 20121019
  Receipt Date: 20121102
  Transmission Date: 20130627
  Serious: Yes (Hospitalization)
  Sender: FDA-Public Use
  Company Number: FR-B.I. PHARMACEUTICALS,INC./RIDGEFIELD-2012-FF-01464FF

PATIENT
  Age: 79 Year
  Sex: Female

DRUGS (5)
  1. PRADAXA [Suspect]
     Dosage: 220 mg
     Route: 048
     Dates: start: 20120601, end: 20120925
  2. KARDEGIC [Suspect]
     Dosage: 75 mg
     Route: 048
     Dates: start: 2009, end: 20120925
  3. CORDARONE [Suspect]
     Dosage: 400 mg
     Route: 048
  4. TEMERIT [Concomitant]
     Route: 048
  5. INEXIUM [Concomitant]
     Route: 048

REACTIONS (3)
  - Rectal haemorrhage [Not Recovered/Not Resolved]
  - Anaemia [Not Recovered/Not Resolved]
  - Renal failure [Not Recovered/Not Resolved]
